FAERS Safety Report 21624347 (Version 1)
Quarter: 2022Q4

REPORT INFORMATION
  Report Type: Spontaneous
  Country: US (occurrence: US)
  Receive Date: 20221121
  Receipt Date: 20221121
  Transmission Date: 20230113
  Serious: No
  Sender: FDA-Public Use
  Company Number: US-BRACCO-2022US00894

PATIENT
  Sex: Male

DRUGS (3)
  1. LUMASON [Suspect]
     Active Substance: SULFUR HEXAFLUORIDE
     Indication: Diagnostic procedure
     Dosage: 2 ML, SINGLE
     Route: 042
     Dates: start: 20220224, end: 20220224
  2. LUMASON [Suspect]
     Active Substance: SULFUR HEXAFLUORIDE
     Indication: Diagnostic procedure
     Dosage: 2 ML, SINGLE
     Route: 042
     Dates: start: 20220224, end: 20220224
  3. LUMASON [Suspect]
     Active Substance: SULFUR HEXAFLUORIDE
     Indication: Diagnostic procedure
     Dosage: 2 ML, SINGLE
     Route: 042
     Dates: start: 20220224, end: 20220224

REACTIONS (3)
  - Burning sensation [Recovered/Resolved]
  - Dyspnoea [Recovered/Resolved]
  - Hypotension [Recovered/Resolved]

NARRATIVE: CASE EVENT DATE: 20220224
